FAERS Safety Report 14951735 (Version 1)
Quarter: 2018Q2

REPORT INFORMATION
  Report Type: Spontaneous
  Country: US (occurrence: US)
  Receive Date: 20180530
  Receipt Date: 20180530
  Transmission Date: 20180711
  Serious: Yes (Other)
  Sender: FDA-Public Use
  Company Number: US-TEVA-2018-US-899456

PATIENT
  Age: 10 Year
  Sex: Female
  Weight: 32.69 kg

DRUGS (2)
  1. CYPROHEPTADINE. [Suspect]
     Active Substance: CYPROHEPTADINE
     Indication: IRRITABLE BOWEL SYNDROME
     Dates: start: 20180504, end: 20180509
  2. MACRODANTIN [Suspect]
     Active Substance: NITROFURANTOIN
     Indication: PYELONEPHRITIS CHRONIC
     Route: 065
     Dates: start: 20180420

REACTIONS (3)
  - Loss of consciousness [Unknown]
  - Vomiting [Recovered/Resolved]
  - Fatigue [Unknown]

NARRATIVE: CASE EVENT DATE: 20180505
